FAERS Safety Report 7130192-5 (Version None)
Quarter: 2010Q4

REPORT INFORMATION
  Report Type: 
  Country: None (occurrence: None)
  Receive Date: 20101116
  Receipt Date: 20101101
  Transmission Date: 20110411
  Serious: Yes (Other)
  Sender: FDA-Public Use
  Company Number: TUK2010A00296

PATIENT
  Age: 62 Year
  Sex: Male

DRUGS (3)
  1. ACTOS [Suspect]
     Indication: PRODUCT USED FOR UNKNOWN INDICATION
     Dosage: 45 MG (45 MG)
     Dates: start: 20101003
  2. METFORMIN HCL [Concomitant]
  3. GLICLAZIDE (GLICLAZIDE) [Concomitant]

REACTIONS (1)
  - BLOOD GLUCOSE INCREASED [None]
